FAERS Safety Report 19416907 (Version 1)
Quarter: 2021Q2

REPORT INFORMATION
  Report Type: Spontaneous
  Country: US (occurrence: US)
  Receive Date: 20210614
  Receipt Date: 20210614
  Transmission Date: 20210717
  Serious: No
  Sender: FDA-Public Use
  Company Number: None

PATIENT
  Age: 76 Year
  Sex: Male
  Weight: 78.02 kg

DRUGS (2)
  1. HYDROXYUREA (HYDROXYUREA 500MG CAP) [Suspect]
     Active Substance: HYDROXYUREA
     Indication: THROMBOCYTOSIS
     Route: 048
     Dates: start: 20201218
  2. APIXABAN (APIXABAN 5MG TAB) [Suspect]
     Active Substance: APIXABAN
     Indication: PULMONARY EMBOLISM
     Route: 048
     Dates: start: 20201218, end: 20210104

REACTIONS (3)
  - Oesophageal varices haemorrhage [None]
  - Melaena [None]
  - Therapy cessation [None]

NARRATIVE: CASE EVENT DATE: 20210104
